FAERS Safety Report 8874817 (Version 2)
Quarter: 2012Q4

REPORT INFORMATION
  Report Type: 
  Country: JP (occurrence: JP)
  Receive Date: 20121030
  Receipt Date: 20121112
  Transmission Date: 20130627
  Serious: Yes (Hospitalization, Other)
  Sender: FDA-Public Use
  Company Number: JP-BRISTOL-MYERS SQUIBB COMPANY-17057944

PATIENT
  Age: 72 Year
  Sex: Female

DRUGS (15)
  1. IRBETAN [Suspect]
     Indication: HYPERTENSION
     Route: 048
     Dates: start: 20100303, end: 201209
  2. CYMBALTA [Suspect]
     Indication: DEPRESSION
     Dosage: Last dose: 10Oct12
     Route: 048
     Dates: start: 20120614, end: 20121010
  3. CYMBALTA [Suspect]
     Indication: SCIATICA
     Dosage: Last dose: 10Oct12
     Route: 048
     Dates: start: 20120614, end: 20121010
  4. CYMBALTA [Suspect]
     Indication: DIABETIC NEUROPATHY
     Dosage: Last dose: 10Oct12
     Route: 048
     Dates: start: 20120614, end: 20121010
  5. SHAKUYAKU-KANZO-TO [Suspect]
     Indication: SCIATICA
     Route: 048
     Dates: start: 20120227, end: 201209
  6. SHAKUYAKU-KANZO-TO [Suspect]
     Indication: MYALGIA
     Route: 048
     Dates: start: 20120227, end: 201209
  7. LAXOBERON [Suspect]
     Indication: CONSTIPATION
     Route: 048
     Dates: start: 20111121, end: 20120829
  8. ALOSENN [Suspect]
     Indication: CONSTIPATION
     Route: 048
     Dates: start: 20100519, end: 20120829
  9. NEUROTROPIN [Concomitant]
     Indication: DIABETIC NEUROPATHY
     Route: 048
     Dates: start: 20120827, end: 201209
  10. EVISTA [Concomitant]
     Indication: OSTEOPOROSIS
     Route: 048
     Dates: start: 20100908, end: 201209
  11. LYRICA [Concomitant]
     Indication: SCIATICA
     Route: 048
     Dates: start: 20101112, end: 201209
  12. LYRICA [Concomitant]
     Indication: DIABETIC NEUROPATHY
     Route: 048
     Dates: start: 20101112, end: 201209
  13. JANUVIA [Concomitant]
     Indication: DIABETES MELLITUS
     Route: 048
     Dates: start: 20110823
  14. EVISTA [Concomitant]
     Indication: OSTEOPOROSIS
     Route: 048
     Dates: start: 20100908, end: 201209
  15. OPALMON [Concomitant]
     Indication: SPINAL COLUMN STENOSIS
     Route: 048
     Dates: start: 20120827

REACTIONS (5)
  - Hypokalaemia [Recovered/Resolved]
  - Quadriplegia [Recovered/Resolved]
  - Fall [Unknown]
  - Compression fracture [Unknown]
  - Depression [Unknown]
